FAERS Safety Report 13095934 (Version 1)
Quarter: 2017Q1

REPORT INFORMATION
  Report Type: Spontaneous
  Country: US (occurrence: US)
  Receive Date: 20170109
  Receipt Date: 20170109
  Transmission Date: 20170428
  Serious: Yes (Other)
  Sender: FDA-Public Use
  Company Number: US-AMGEN-USASP2017001273

PATIENT
  Age: 17 Year
  Sex: Female

DRUGS (1)
  1. ENBREL [Suspect]
     Active Substance: ETANERCEPT
     Indication: JUVENILE IDIOPATHIC ARTHRITIS
     Dosage: 50 MG, EVERY 7 DAYS
     Route: 058
     Dates: start: 201610

REACTIONS (3)
  - Juvenile idiopathic arthritis [Unknown]
  - Tooth extraction [Unknown]
  - Fatigue [Unknown]

NARRATIVE: CASE EVENT DATE: 2016
